FAERS Safety Report 21182320 (Version 1)
Quarter: 2022Q3

REPORT INFORMATION
  Report Type: Report from Study
  Country: US (occurrence: US)
  Receive Date: 20220807
  Receipt Date: 20220807
  Transmission Date: 20221027
  Serious: Yes (Other)
  Sender: FDA-Public Use
  Company Number: US-BRISTOL-MYERS SQUIBB COMPANY-2022-081758

PATIENT
  Age: 41 Year
  Sex: Female

DRUGS (2)
  1. ZEPOSIA [Suspect]
     Active Substance: OZANIMOD HYDROCHLORIDE
     Indication: Product used for unknown indication
     Dosage: DAILY
     Route: 048
     Dates: start: 20220102
  2. PRIMODIL [AMLODIPINE] [Concomitant]
     Indication: Hypertension
     Route: 065

REACTIONS (2)
  - Blood pressure increased [Not Recovered/Not Resolved]
  - Malaise [Not Recovered/Not Resolved]
